FAERS Safety Report 7625956-5 (Version None)
Quarter: 2011Q3

REPORT INFORMATION
  Report Type: 
  Country: None (occurrence: None)
  Receive Date: 20110721
  Receipt Date: 20110721
  Transmission Date: 20111222
  Serious: Yes (Other)
  Sender: FDA-Public Use
  Company Number: None

PATIENT
  Age: 38 Year
  Sex: Male
  Weight: 73.935 kg

DRUGS (1)
  1. CITALOPRAM HYDROBROMIDE [Suspect]
     Indication: ANXIETY
     Dosage: I THINK 30MG
     Route: 048
     Dates: start: 20090924, end: 20091014

REACTIONS (5)
  - ERECTILE DYSFUNCTION [None]
  - LOSS OF LIBIDO [None]
  - PREMATURE EJACULATION [None]
  - PARAESTHESIA [None]
  - ORGASM ABNORMAL [None]
